FAERS Safety Report 14649128 (Version 5)
Quarter: 2020Q2

REPORT INFORMATION
  Report Type: Spontaneous
  Country: US (occurrence: US)
  Receive Date: 20180316
  Receipt Date: 20200630
  Transmission Date: 20200713
  Serious: Yes (Other)
  Sender: FDA-Public Use
  Company Number: US-PFIZER INC-2018100816

PATIENT
  Age: 61 Year
  Sex: Male
  Weight: 95.25 kg

DRUGS (1)
  1. XALATAN [Suspect]
     Active Substance: LATANOPROST
     Indication: GLAUCOMA
     Dosage: 2 DROP, 1X/DAY (ONE DROP IN EACH EYE IN THE EVENING EVERYDAY)
     Route: 047

REACTIONS (2)
  - Visual impairment [Unknown]
  - Blindness unilateral [Not Recovered/Not Resolved]
